FAERS Safety Report 9790276 (Version 2)
Quarter: 2014Q1

REPORT INFORMATION
  Report Type: Spontaneous
  Country: IT (occurrence: IT)
  Receive Date: 20131231
  Receipt Date: 20140221
  Transmission Date: 20141002
  Serious: Yes (Hospitalization)
  Sender: FDA-Public Use
  Company Number: IT-SA-2013SA134610

PATIENT
  Age: 91 Year
  Sex: Female

DRUGS (6)
  1. LASIX [Suspect]
     Indication: HYPERTENSION
     Route: 048
     Dates: start: 20100101, end: 20131021
  2. CONGESCOR [Suspect]
     Indication: HYPERTENSION
     Route: 048
     Dates: start: 20100101, end: 20131021
  3. ASPIRINETTA [Concomitant]
     Route: 048
  4. FERROUS GLUCONATE [Concomitant]
  5. DIFIX [Concomitant]
     Route: 048
  6. DIBASE [Concomitant]

REACTIONS (5)
  - Bradycardia [Recovered/Resolved]
  - Dehydration [Recovered/Resolved]
  - Renal failure [Recovered/Resolved]
  - Blood urea increased [Recovered/Resolved]
  - Blood creatinine increased [Recovered/Resolved]
